FAERS Safety Report 5004137-8 (Version None)
Quarter: 2006Q2

REPORT INFORMATION
  Report Type: 
  Country: None (occurrence: None)
  Receive Date: 20060517
  Receipt Date: 20051213
  Transmission Date: 20061013
  Serious: Yes (Death)
  Sender: FDA-Public Use
  Company Number: 2005AP06397

PATIENT
  Age: 32014 Day
  Sex: Male
  Weight: 49 kg

DRUGS (11)
  1. ZOLADEX [Suspect]
     Indication: PROSTATE CANCER
     Route: 058
     Dates: start: 20030709, end: 20050915
  2. ZOLADEX [Suspect]
     Route: 058
     Dates: start: 20051013, end: 20051013
  3. CASODEX [Suspect]
     Indication: PROSTATE CANCER
     Route: 048
     Dates: start: 20030709, end: 20040701
  4. ESTRACYT [Concomitant]
     Indication: PROSTATE CANCER
     Route: 048
     Dates: start: 20040701, end: 20051110
  5. ESTRACYT [Concomitant]
     Route: 048
     Dates: start: 20051110, end: 20051205
  6. DECADRON SRC [Concomitant]
     Indication: PROSTATE CANCER
     Route: 048
     Dates: start: 20041110, end: 20051205
  7. NORVASC [Concomitant]
     Route: 048
  8. DOPS [Concomitant]
     Route: 048
  9. NU-LOTAN [Concomitant]
     Route: 048
  10. BUFFERIN [Concomitant]
     Route: 048
  11. FRANDOL [Concomitant]

REACTIONS (3)
  - DECREASED APPETITE [None]
  - INTERSTITIAL LUNG DISEASE [None]
  - PROSTATE CANCER RECURRENT [None]
